FAERS Safety Report 8949822 (Version 10)
Quarter: 2013Q2

REPORT INFORMATION
  Report Type: Report from Study
  Country: CA (occurrence: CA)
  Receive Date: 20121206
  Receipt Date: 20130515
  Transmission Date: 20140414
  Serious: Yes (Death, Other)
  Sender: FDA-Public Use
  Company Number: CA-ROCHE-1156670

PATIENT
  Age: 54 Year
  Sex: Male
  Weight: 93 kg

DRUGS (16)
  1. PMS-ISMN [Concomitant]
  2. METFORMIN [Concomitant]
  3. CRESTOR [Concomitant]
  4. TEGRETOL [Concomitant]
  5. CLOBAZAM [Concomitant]
  6. BENADRYL [Concomitant]
     Indication: PREMEDICATION
     Route: 048
     Dates: start: 20121003, end: 20130306
  7. TYLENOL [Concomitant]
     Indication: PREMEDICATION
     Route: 048
     Dates: start: 20121003, end: 20130306
  8. SOLU-MEDROL [Concomitant]
     Indication: PREMEDICATION
     Route: 042
     Dates: start: 20121003, end: 20121003
  9. AVASTIN [Suspect]
     Indication: GLIOBLASTOMA
     Route: 042
     Dates: start: 20121003
  10. AVASTIN [Suspect]
     Route: 042
     Dates: start: 20121016, end: 20130306
  11. DECADRON [Suspect]
     Indication: PRODUCT USED FOR UNKNOWN INDICATION
     Route: 065
  12. DECADRON [Suspect]
     Route: 065
  13. DECADRON [Suspect]
     Route: 065
  14. PANTOPRAZOLE [Concomitant]
  15. KEPPRA [Concomitant]
  16. ASAPHEN [Concomitant]

REACTIONS (13)
  - Pneumonia [Fatal]
  - Respiratory failure [Fatal]
  - Balance disorder [Not Recovered/Not Resolved]
  - Speech disorder [Not Recovered/Not Resolved]
  - Neoplasm [Unknown]
  - Neoplasm [Unknown]
  - Mobility decreased [Not Recovered/Not Resolved]
  - Fatigue [Not Recovered/Not Resolved]
  - Weight decreased [Not Recovered/Not Resolved]
  - Weight increased [Unknown]
  - Asthenia [Unknown]
  - Malaise [Not Recovered/Not Resolved]
  - Somnolence [Not Recovered/Not Resolved]
